FAERS Safety Report 17509546 (Version 1)
Quarter: 2020Q1

REPORT INFORMATION
  Report Type: Spontaneous
  Country: US (occurrence: US)
  Receive Date: 20200226
  Receipt Date: 20200226
  Transmission Date: 20200409
  Serious: No
  Sender: FDA-Public Use
  Company Number: None

PATIENT
  Age: 79 Year
  Sex: Female

DRUGS (1)
  1. CAPECITABINE TAB 500MG [Suspect]
     Active Substance: CAPECITABINE
     Dosage: END DATE  06-MAR-2020
     Route: 048
     Dates: start: 20200203

REACTIONS (3)
  - Memory impairment [None]
  - Inappropriate schedule of product administration [None]
  - Product use issue [None]

NARRATIVE: CASE EVENT DATE: 20200226
